FAERS Safety Report 8306148-3 (Version None)
Quarter: 2012Q2

REPORT INFORMATION
  Report Type: 
  Country: None (occurrence: None)
  Receive Date: 20120423
  Receipt Date: 20120416
  Transmission Date: 20120825
  Serious: Yes (Hospitalization, Other)
  Sender: FDA-Public Use
  Company Number: US-ELI_LILLY_AND_COMPANY-US201103006899

PATIENT
  Sex: Female

DRUGS (12)
  1. FORTEO [Suspect]
     Dosage: 20 UG, QD
     Dates: end: 20120125
  2. OXAZEPAM [Concomitant]
     Dosage: UNK, PRN
  3. FORTEO [Suspect]
     Dosage: 20 UG, QD
  4. ENABLEX                            /01760401/ [Concomitant]
  5. VITAMIN D [Concomitant]
  6. FORTEO [Suspect]
     Dosage: 20 UG, QD
  7. ASCORBIC ACID [Concomitant]
  8. CALCIUM WITH VITAMIN D [Concomitant]
  9. NORCO [Concomitant]
  10. TYLENOL (CAPLET) [Concomitant]
  11. LISINOPRIL [Concomitant]
  12. FORTEO [Suspect]
     Indication: OSTEOPOROSIS
     Dosage: 20 UG, QD
     Dates: start: 20101129

REACTIONS (9)
  - OEDEMA PERIPHERAL [None]
  - DYSKINESIA [None]
  - HIP FRACTURE [None]
  - FALL [None]
  - LOWER LIMB FRACTURE [None]
  - LIMB DISCOMFORT [None]
  - DRUG DOSE OMISSION [None]
  - GAIT DISTURBANCE [None]
  - INTENTIONAL DRUG MISUSE [None]
